FAERS Safety Report 7493306-3 (Version None)
Quarter: 2011Q2

REPORT INFORMATION
  Report Type: 
  Country: None (occurrence: None)
  Receive Date: 20110520
  Receipt Date: 20110510
  Transmission Date: 20111010
  Serious: Yes (Other)
  Sender: FDA-Public Use
  Company Number: US-AMGEN-USASP2011024422

PATIENT
  Age: 81 Year
  Sex: Female

DRUGS (1)
  1. PROLIA [Suspect]
     Indication: OSTEOPOROSIS POSTMENOPAUSAL
     Dosage: 60 MG, Q6MO
     Dates: start: 20100801

REACTIONS (8)
  - TOOTH DISORDER [None]
  - CHEST PAIN [None]
  - CARDIAC DISORDER [None]
  - PAIN IN EXTREMITY [None]
  - BRUXISM [None]
  - C-TELOPEPTIDE INCREASED [None]
  - MUSCLE SPASMS [None]
  - FATIGUE [None]
